FAERS Safety Report 4832776-3 (Version None)
Quarter: 2005Q4

REPORT INFORMATION
  Report Type: 
  Country: None (occurrence: None)
  Receive Date: 20051117
  Receipt Date: 20051102
  Transmission Date: 20060501
  Serious: Yes (Hospitalization)
  Sender: FDA-Public Use
  Company Number: EWC051147123

PATIENT
  Age: 34 Year
  Sex: Male

DRUGS (3)
  1. ZYPREXA [Suspect]
     Indication: PSYCHOTIC DISORDER
     Dosage: 20 MG DAY
     Dates: start: 20050927, end: 20051102
  2. CISORDINOL /DEN/ (CLOPENTHIXOL HYDROCHLORIDE) [Concomitant]
  3. RISPERDAL [Concomitant]

REACTIONS (1)
  - LEUKOPENIA [None]
